FAERS Safety Report 24213186 (Version 1)
Quarter: 2024Q3

REPORT INFORMATION
  Report Type: Spontaneous
  Country: US (occurrence: None)
  Receive Date: 20240814
  Receipt Date: 20240814
  Transmission Date: 20241016
  Serious: Yes (Other)
  Sender: Public
  Company Number: None

PATIENT
  Age: 17 Year
  Sex: Female
  Weight: 48 kg

DRUGS (1)
  1. IOHEXOL [Suspect]
     Active Substance: IOHEXOL
     Indication: X-ray
     Dosage: OTHER FREQUENCY : ONCE;?
     Route: 042
     Dates: start: 20240804, end: 20240804

REACTIONS (4)
  - Sneezing [None]
  - Throat tightness [None]
  - Lip swelling [None]
  - Contrast media reaction [None]

NARRATIVE: CASE EVENT DATE: 20240804
